FAERS Safety Report 6446550-8 (Version None)
Quarter: 2009Q4

REPORT INFORMATION
  Report Type: 
  Country: None (occurrence: None)
  Receive Date: 20091116
  Receipt Date: 20091110
  Transmission Date: 20100525
  Serious: Yes (Other)
  Sender: FDA-Public Use
  Company Number: 2009018011

PATIENT

DRUGS (1)
  1. TREANDA [Suspect]
     Dosage: (1.5 CYCLES), INTRAVENOUS
     Route: 042

REACTIONS (1)
  - APLASTIC ANAEMIA [None]
